FAERS Safety Report 14712895 (Version 3)
Quarter: 2018Q2

REPORT INFORMATION
  Report Type: Report from Study
  Country: US (occurrence: US)
  Receive Date: 20180404
  Receipt Date: 20180419
  Transmission Date: 20180711
  Serious: No
  Sender: FDA-Public Use
  Company Number: US-ROCHE-2095117

PATIENT
  Age: 48 Year
  Sex: Female

DRUGS (1)
  1. OCREVUS [Suspect]
     Active Substance: OCRELIZUMAB
     Indication: MULTIPLE SCLEROSIS
     Dosage: SECOND HALF DOSE : 22/NOV/2017
     Route: 042
     Dates: start: 20171110

REACTIONS (6)
  - Fatigue [Unknown]
  - Lymphocyte count decreased [Unknown]
  - Upper respiratory tract infection [Unknown]
  - Neutrophil count increased [Unknown]
  - Sinusitis [Unknown]
  - White blood cell count increased [Unknown]

NARRATIVE: CASE EVENT DATE: 20180403
